FAERS Safety Report 6814505-7 (Version None)
Quarter: 2010Q3

REPORT INFORMATION
  Report Type: 
  Country: None (occurrence: None)
  Receive Date: 20100702
  Receipt Date: 20090714
  Transmission Date: 20110219
  Serious: No
  Sender: FDA-Public Use
  Company Number: US-BRISTOL-MYERS SQUIBB COMPANY-14693519

PATIENT
  Age: 21 Year
  Sex: Female
  Weight: 53 kg

DRUGS (2)
  1. ABILIFY [Suspect]
     Indication: ATTENTION DEFICIT/HYPERACTIVITY DISORDER
     Dosage: ONE HOUR BEFORE SLEEP. RECEIVED APPROXIMATELY FOR 11 DAYS
     Route: 048
     Dates: start: 20090619, end: 20090705
  2. ADDERALL 10 [Concomitant]

REACTIONS (11)
  - ABNORMAL BEHAVIOUR [None]
  - CRYING [None]
  - DROOLING [None]
  - DYSPHONIA [None]
  - GAIT DISTURBANCE [None]
  - HEART RATE INCREASED [None]
  - MOVEMENT DISORDER [None]
  - MUSCLE RIGIDITY [None]
  - SALIVARY HYPERSECRETION [None]
  - TREMOR [None]
  - VISION BLURRED [None]
